FAERS Safety Report 13936210 (Version 1)
Quarter: 2017Q3

REPORT INFORMATION
  Report Type: Spontaneous
  Country: US (occurrence: US)
  Receive Date: 20170905
  Receipt Date: 20170905
  Transmission Date: 20171127
  Serious: Yes (Hospitalization)
  Sender: FDA-Public Use
  Company Number: None

PATIENT
  Age: 42 Year
  Sex: Male
  Weight: 135 kg

DRUGS (4)
  1. MIDODRINE [Concomitant]
     Active Substance: MIDODRINE
  2. VITAMIN B12 [Concomitant]
     Active Substance: CYANOCOBALAMIN
  3. WARFARIN SOD 5MG [Suspect]
     Active Substance: WARFARIN SODIUM
     Indication: PULMONARY EMBOLISM
     Dosage: ?          QUANTITY:1 TABLET(S);?
     Dates: start: 20170501, end: 20170901
  4. PINDOLOL. [Concomitant]
     Active Substance: PINDOLOL

REACTIONS (6)
  - Hyperhidrosis [None]
  - Dyspnoea [None]
  - Chest pain [None]
  - Chest discomfort [None]
  - Dizziness [None]
  - Skin disorder [None]

NARRATIVE: CASE EVENT DATE: 20170826
